FAERS Safety Report 12990496 (Version 2)
Quarter: 2016Q4

REPORT INFORMATION
  Report Type: Report from Study
  Country: US (occurrence: US)
  Receive Date: 20161201
  Receipt Date: 20161202
  Transmission Date: 20170207
  Serious: Yes (Other)
  Sender: FDA-Public Use
  Company Number: US-BAYER-2016-216936

PATIENT
  Age: 58 Year
  Sex: Male
  Weight: 110.2 kg

DRUGS (11)
  1. STIVARGA [Suspect]
     Active Substance: REGORAFENIB
     Indication: RECTAL ADENOCARCINOMA
     Dosage: DAILY DOSE 160 MG ON DAYS 1-21
     Route: 048
     Dates: start: 20161105
  2. MULTIVITAMIN [Concomitant]
     Active Substance: VITAMINS
  3. LYRICA [Concomitant]
     Active Substance: PREGABALIN
  4. DEXAMETHASONE. [Concomitant]
     Active Substance: DEXAMETHASONE
  5. SILODOSIN [Concomitant]
     Active Substance: SILODOSIN
  6. STIVARGA [Suspect]
     Active Substance: REGORAFENIB
     Indication: RECTAL ADENOCARCINOMA
     Dosage: DAILY DOSE 120 MG ON DAY 1 THROUGH 21 EVERY 28 DAYS
     Route: 048
     Dates: start: 201611
  7. ZOLPIDEM [Concomitant]
     Active Substance: ZOLPIDEM\ZOLPIDEM TARTRATE
  8. CENTRUM SILVER [Concomitant]
     Active Substance: MINERALS\VITAMINS
  9. LEVETIRACETAM. [Concomitant]
     Active Substance: LEVETIRACETAM
  10. FINASTERIDE. [Concomitant]
     Active Substance: FINASTERIDE
  11. TESTOSTERONE CYPIONATE. [Concomitant]
     Active Substance: TESTOSTERONE CYPIONATE

REACTIONS (6)
  - Headache [Recovering/Resolving]
  - Constipation [Recovering/Resolving]
  - Abdominal pain [Recovering/Resolving]
  - Pyrexia [Recovering/Resolving]
  - Pancreatitis [Unknown]
  - Diarrhoea [None]

NARRATIVE: CASE EVENT DATE: 20161109
